FAERS Safety Report 6724305-4 (Version None)
Quarter: 2010Q2

REPORT INFORMATION
  Report Type: 
  Country: None (occurrence: None)
  Receive Date: 20100513
  Receipt Date: 20100511
  Transmission Date: 20101027
  Serious: Yes (Hospitalization)
  Sender: FDA-Public Use
  Company Number: FR-WYE-H13163210

PATIENT
  Age: 86 Year
  Sex: Male

DRUGS (3)
  1. CORDARONE [Suspect]
     Route: 048
     Dates: end: 20090901
  2. LASIX [Concomitant]
     Dosage: 500 MG
  3. CARDENSIEL [Concomitant]
     Dosage: 2.5 MG

REACTIONS (5)
  - ACUTE RESPIRATORY DISTRESS SYNDROME [None]
  - ATRIAL TACHYCARDIA [None]
  - CARDIAC FAILURE [None]
  - CARDIOGENIC SHOCK [None]
  - HYPERTHYROIDISM [None]
